FAERS Safety Report 6823698-7 (Version None)
Quarter: 2010Q3

REPORT INFORMATION
  Report Type: 
  Country: None (occurrence: None)
  Receive Date: 20100708
  Receipt Date: 20060831
  Transmission Date: 20110219
  Serious: No
  Sender: FDA-Public Use
  Company Number: US-PFIZER INC-2006107827

PATIENT
  Sex: Female
  Weight: 79.54 kg

DRUGS (8)
  1. CHANTIX [Suspect]
     Indication: SMOKING CESSATION THERAPY
     Route: 048
     Dates: start: 20060731
  2. LEUPROLIDE ACETATE [Suspect]
     Indication: OVARIAN CYST
     Route: 030
     Dates: start: 20060717
  3. ALLEGRA [Suspect]
     Indication: MULTIPLE ALLERGIES
     Route: 048
     Dates: start: 20060724
  4. CYMBALTA [Concomitant]
     Indication: DEPRESSION
     Route: 048
     Dates: start: 20051101
  5. KLONOPIN [Concomitant]
     Indication: DEPRESSION
     Route: 048
     Dates: start: 19990101
  6. TRAZODONE [Concomitant]
     Indication: DEPRESSION
     Route: 048
     Dates: start: 20050101
  7. ADVAIR DISKUS 100/50 [Concomitant]
     Indication: ASTHMA
     Dosage: 1 PUFF
     Route: 055
     Dates: start: 20050101
  8. ALBUTEROL [Concomitant]
     Indication: ASTHMA
     Dosage: 2 PUFFS
     Route: 055
     Dates: start: 20050101

REACTIONS (2)
  - ASTHENIA [None]
  - DEPRESSION [None]
